FAERS Safety Report 5955948-3 (Version None)
Quarter: 2008Q4

REPORT INFORMATION
  Report Type: 
  Country: None (occurrence: None)
  Receive Date: 20081112
  Receipt Date: 20081027
  Transmission Date: 20090506
  Serious: Yes (Life-Threatening, Hospitalization)
  Sender: FDA-Public Use
  Company Number: DSA_32592_2008

PATIENT
  Age: 73 Year
  Sex: Female

DRUGS (12)
  1. CITALOPRAM HYDROBROMIDE [Suspect]
     Indication: DEPRESSION
     Dosage: (40 MG QD)
  2. FLUCONAZOLE [Suspect]
     Indication: DRUG USE FOR UNKNOWN INDICATION
     Dosage: (100 MG QD)
  3. CLONAZEPAM [Concomitant]
  4. LEVOFLOXACIN [Concomitant]
  5. METOPROLOL TARTRATE [Concomitant]
  6. ACYCLOVIR [Concomitant]
  7. VANCOMYCIN [Concomitant]
  8. AMLODIPINE [Concomitant]
  9. VALSARTAN [Concomitant]
  10. PANTOPRAZOLE SODIUM [Concomitant]
  11. ETOPOSIDE [Concomitant]
  12. IFOSFAMIDE [Concomitant]

REACTIONS (18)
  - ASTERIXIS [None]
  - BLOOD GLUCOSE INCREASED [None]
  - BLOOD POTASSIUM DECREASED [None]
  - BLOOD PRESSURE INCREASED [None]
  - BLOOD SODIUM DECREASED [None]
  - DELIRIUM [None]
  - DISORIENTATION [None]
  - DRUG TOXICITY [None]
  - INTERNATIONAL NORMALISED RATIO DECREASED [None]
  - LETHARGY [None]
  - MENINGIOMA [None]
  - NEUTROPENIA [None]
  - PANCYTOPENIA [None]
  - PROTHROMBIN TIME PROLONGED [None]
  - PSYCHOMOTOR RETARDATION [None]
  - RESPIRATORY RATE INCREASED [None]
  - SEROTONIN SYNDROME [None]
  - SOMNOLENCE [None]
